FAERS Safety Report 13359894 (Version 2)
Quarter: 2017Q2

REPORT INFORMATION
  Report Type: Spontaneous
  Country: JP (occurrence: JP)
  Receive Date: 20170322
  Receipt Date: 20170420
  Transmission Date: 20170830
  Serious: No
  Sender: FDA-Public Use
  Company Number: JP-FERRINGPH-2017FE01095

PATIENT
  Age: 46 Year

DRUGS (3)
  1. DESMOPRESSIN [Concomitant]
     Active Substance: DESMOPRESSIN
     Indication: DIABETES INSIPIDUS
     Dosage: 720 ?G, DAILY
     Route: 048
     Dates: start: 20140903
  2. DESMOPRESSIN [Suspect]
     Active Substance: DESMOPRESSIN
     Indication: DIABETES INSIPIDUS
     Dosage: 2 ?G, DAILY
     Route: 058
  3. DESMOPRESSIN [Suspect]
     Active Substance: DESMOPRESSIN
     Indication: DIABETES INSIPIDUS
     Dosage: 10 ?G, DAILY
     Route: 045

REACTIONS (6)
  - Hypernatraemia [Unknown]
  - Product use issue [Unknown]
  - Thirst decreased [Unknown]
  - Altered state of consciousness [Unknown]
  - Seizure [Unknown]
  - Memory impairment [Unknown]
